FAERS Safety Report 5119959-2 (Version None)
Quarter: 2006Q3

REPORT INFORMATION
  Report Type: 
  Country: None (occurrence: None)
  Receive Date: 20060929
  Receipt Date: 20060919
  Transmission Date: 20061208
  Serious: Yes (Hospitalization, Other)
  Sender: FDA-Public Use
  Company Number: 2006107157

PATIENT
  Age: 74 Year
  Sex: Male

DRUGS (10)
  1. ALDACTONE [Suspect]
     Dosage: 25 MG, ORAL
     Route: 048
     Dates: start: 20060510
  2. FAMOTIDINE [Suspect]
     Dosage: 20 MG, ORAL
     Route: 048
  3. TAMSULOSIN HCL [Suspect]
     Dosage: 0.2 MG, ORAL
     Route: 048
  4. LASIX [Suspect]
     Dosage: 50 MG, ORAL
     Route: 048
  5. BIOFERMIN (BACILLUS SUBTILIS, LACTOBACILLUS ACIDOPHILUS, STREPTOCOCCUS [Concomitant]
  6. LENDORM [Concomitant]
  7. MEXITIL [Concomitant]
  8. GRAMALIL (TIAPRIDE HYDROCHLORIDE) [Concomitant]
  9. MAGNESIUM OXIDE (MAGNESIUM OXIDE) [Concomitant]
  10. DIGOXIN [Concomitant]

REACTIONS (5)
  - BREAST PAIN [None]
  - CARDIAC DISORDER [None]
  - CEREBRAL INFARCTION [None]
  - GYNAECOMASTIA [None]
  - REFUSAL OF TREATMENT BY PATIENT [None]
